FAERS Safety Report 19585970 (Version 4)
Quarter: 2021Q4

REPORT INFORMATION
  Report Type: Spontaneous
  Country: US (occurrence: US)
  Receive Date: 20210720
  Receipt Date: 20211208
  Transmission Date: 20220303
  Serious: Yes (Other)
  Sender: FDA-Public Use
  Company Number: US-PFIZER INC-2021862172

PATIENT
  Age: 61 Year
  Sex: Female

DRUGS (4)
  1. IBRANCE [Suspect]
     Active Substance: PALBOCICLIB
     Dosage: 125 MG
     Dates: start: 20210519
  2. GABAPENTIN [Concomitant]
     Active Substance: GABAPENTIN
     Indication: Neuropathy peripheral
     Dosage: UNK
  3. COQ10 [ASCORBIC ACID;BETACAROTENE;CUPRIC OXIDE;MANGANESE SULFATE;SELEN [Concomitant]
     Indication: Neuropathy peripheral
     Dosage: UNK
  4. MIRAPEX [Concomitant]
     Active Substance: PRAMIPEXOLE DIHYDROCHLORIDE
     Dosage: UNK
     Dates: start: 2018

REACTIONS (6)
  - Diabetes mellitus [Unknown]
  - Neuropathy peripheral [Unknown]
  - Burning sensation [Unknown]
  - Hypoaesthesia [Unknown]
  - Paraesthesia [Recovering/Resolving]
  - Constipation [Unknown]
